FAERS Safety Report 6427173-3 (Version None)
Quarter: 2009Q4

REPORT INFORMATION
  Report Type: 
  Country: None (occurrence: None)
  Receive Date: 20091104
  Receipt Date: 20091007
  Transmission Date: 20100525
  Serious: No
  Sender: FDA-Public Use
  Company Number: US-TYCO HEALTHCARE/MALLINCKRODT-T200901883

PATIENT
  Age: 55 Year
  Sex: Female
  Weight: 61.224 kg

DRUGS (1)
  1. THALLOUS CHLORIDE TL-201 [Suspect]
     Indication: SCAN MYOCARDIAL PERFUSION
     Dosage: 4 MCI, SINGLE
     Route: 042
     Dates: start: 20091006, end: 20091006

REACTIONS (5)
  - CHILLS [None]
  - INFLUENZA [None]
  - LETHARGY [None]
  - NAUSEA [None]
  - VOMITING [None]
